FAERS Safety Report 21561162 (Version 4)
Quarter: 2022Q4

REPORT INFORMATION
  Report Type: Spontaneous
  Country: CO (occurrence: CO)
  Receive Date: 20221107
  Receipt Date: 20221219
  Transmission Date: 20230112
  Serious: No
  Sender: FDA-Public Use
  Company Number: CO-AMGEN-COLSP2022188807

PATIENT
  Age: 74 Year
  Sex: Female
  Weight: 83 kg

DRUGS (16)
  1. NEULASTA [Suspect]
     Active Substance: PEGFILGRASTIM
     Indication: Prophylaxis
     Dosage: 6 MILLIGRAM
     Route: 058
  2. NEULASTA [Suspect]
     Active Substance: PEGFILGRASTIM
     Dosage: 6 MILLIGRAM
     Route: 058
  3. PACLITAXEL [Concomitant]
     Active Substance: PACLITAXEL
     Dosage: 330 MILLIGRAM (175MG/M2 )
     Route: 040
  4. CARBOPLATIN [Concomitant]
     Active Substance: CARBOPLATIN
     Dosage: AUC 5:480MG
     Route: 040
  5. FOSAPREPITANT [Concomitant]
     Active Substance: FOSAPREPITANT
     Dosage: 150 MICROGRAM
     Route: 040
  6. DIPHENHYDRAMINE [Concomitant]
     Active Substance: DIPHENHYDRAMINE
     Dosage: 50 MILLIGRAM
     Route: 040
  7. DEXAMETHASONE [Concomitant]
     Active Substance: DEXAMETHASONE
     Dosage: 12 MILLIGRAM
  8. ONDANSETRON [Concomitant]
     Active Substance: ONDANSETRON
     Dosage: 16 MILLIGRAM
     Route: 040
  9. ACETAMINOPHEN [Concomitant]
     Active Substance: ACETAMINOPHEN
     Dosage: UNK
  10. TRAMADOL [Concomitant]
     Active Substance: TRAMADOL
     Dosage: UNK
  11. ESOMEPRAZOLE [Concomitant]
     Active Substance: ESOMEPRAZOLE
     Dosage: UNK
  12. LEVOTHYROXINE [Concomitant]
     Active Substance: LEVOTHYROXINE
     Indication: Hypothyroidism
     Dosage: UNK
  13. ATORVASTATIN [Concomitant]
     Active Substance: ATORVASTATIN
     Dosage: UNK
  14. LOSARTAN [Concomitant]
     Active Substance: LOSARTAN
     Dosage: UNK
  15. METOPROLOL [Concomitant]
     Active Substance: METOPROLOL
     Dosage: UNK
  16. NIFEDIPINE [Concomitant]
     Active Substance: NIFEDIPINE
     Dosage: UNK

REACTIONS (1)
  - Device malfunction [Unknown]

NARRATIVE: CASE EVENT DATE: 20221021
